FAERS Safety Report 17945488 (Version 1)
Quarter: 2020Q2

REPORT INFORMATION
  Report Type: Spontaneous
  Country: GB (occurrence: GB)
  Receive Date: 20200626
  Receipt Date: 20200626
  Transmission Date: 20200714
  Serious: Yes (Life-Threatening, Other)
  Sender: FDA-Public Use
  Company Number: GB-UCBSA-2020025121

PATIENT
  Age: 76 Year
  Sex: Male
  Weight: 93 kg

DRUGS (7)
  1. ROTIGOTINE [Suspect]
     Active Substance: ROTIGOTINE
     Indication: PARKINSON^S DISEASE
     Dosage: 2 MG, 1 DOSAGE FORM, ONCE DAILY (QD)
     Route: 062
     Dates: start: 20200522, end: 20200522
  2. CO-CARELDOPA [Concomitant]
     Active Substance: CARBIDOPA\LEVODOPA
     Indication: PRODUCT USED FOR UNKNOWN INDICATION
  3. MORPHINE [Concomitant]
     Active Substance: MORPHINE
     Indication: PRODUCT USED FOR UNKNOWN INDICATION
     Dosage: HALF TO 1 TEASP 4 HOURLY
     Dates: start: 20200501
  4. ACETYLSALICYLIC ACID [Concomitant]
     Active Substance: ASPIRIN
     Indication: PRODUCT USED FOR UNKNOWN INDICATION
  5. PRAMIPEXOLE. [Concomitant]
     Active Substance: PRAMIPEXOLE
     Indication: PRODUCT USED FOR UNKNOWN INDICATION
  6. COCODAMOL [Concomitant]
     Active Substance: ACETAMINOPHEN\CODEINE PHOSPHATE
     Indication: PRODUCT USED FOR UNKNOWN INDICATION
     Dosage: 1-2 TABS FOUR TIMES DAILY WHEN REQUIRED
  7. SINEMET [Concomitant]
     Active Substance: CARBIDOPA\LEVODOPA
     Indication: PRODUCT USED FOR UNKNOWN INDICATION
     Dosage: TOTAL OF 1550MG OVER 24 HOURS

REACTIONS (8)
  - Parkinson^s disease [Unknown]
  - Blister [Recovered/Resolved]
  - Wheezing [Unknown]
  - Dyspnoea [Unknown]
  - Dyskinesia [Not Recovered/Not Resolved]
  - Chest pain [Recovered/Resolved]
  - Aphonia [Recovering/Resolving]
  - Communication disorder [Unknown]

NARRATIVE: CASE EVENT DATE: 20200522
